FAERS Safety Report 10139490 (Version 2)
Quarter: 2015Q1

REPORT INFORMATION
  Report Type: Other
  Country: US (occurrence: US)
  Receive Date: 20140429
  Receipt Date: 20150227
  Transmission Date: 20150720
  Serious: Yes (Hospitalization, Other)
  Sender: FDA-Public Use
  Company Number: US-GSKPPD-2014GSK040449

PATIENT
  Age: 64 Year
  Sex: Female

DRUGS (7)
  1. HEPARIN [Concomitant]
     Active Substance: HEPARIN SODIUM
     Dosage: 10000  UNITS
     Route: 058
  2. CLONIDINE. [Concomitant]
     Active Substance: CLONIDINE
  3. DIOVAN [Concomitant]
     Active Substance: VALSARTAN
  4. AVANDIA [Suspect]
     Active Substance: ROSIGLITAZONE MALEATE
     Indication: DIABETES MELLITUS
     Dosage: AVANDIA WAS NOT LISTED AMONG THE PATIENTS RECORDS REVIEWED.
     Route: 048
  5. LASIX [Concomitant]
     Active Substance: FUROSEMIDE
  6. METOPROLOL [Concomitant]
     Active Substance: METOPROLOL
     Route: 048
  7. AMLODIPINE [Concomitant]
     Active Substance: AMLODIPINE BESYLATE
     Route: 048

REACTIONS (1)
  - Basal ganglia haemorrhage [Recovered/Resolved]

NARRATIVE: CASE EVENT DATE: 20080211
